FAERS Safety Report 6576058-0 (Version None)
Quarter: 2010Q1

REPORT INFORMATION
  Report Type: 
  Country: None (occurrence: None)
  Receive Date: 20100209
  Receipt Date: 20100128
  Transmission Date: 20100710
  Serious: Yes (Hospitalization)
  Sender: FDA-Public Use
  Company Number: PHHY2010CA04986

PATIENT
  Age: 54 Year
  Sex: Male

DRUGS (1)
  1. DIOVAN HCT [Suspect]
     Dosage: 160/12.5 MG

REACTIONS (10)
  - DIZZINESS [None]
  - DYSPNOEA [None]
  - EAR PAIN [None]
  - GASTRIC DILATATION [None]
  - HYPERSENSITIVITY [None]
  - LIP SWELLING [None]
  - LOCAL SWELLING [None]
  - MYALGIA [None]
  - SWELLING FACE [None]
  - SWOLLEN TONGUE [None]
